FAERS Safety Report 25122681 (Version 1)
Quarter: 2025Q1

REPORT INFORMATION
  Report Type: Spontaneous
  Country: CN (occurrence: CN)
  Receive Date: 20250326
  Receipt Date: 20250326
  Transmission Date: 20250409
  Serious: Yes (Hospitalization)
  Sender: MACLEODS
  Company Number: CN-MLMSERVICE-20250311-PI429257-00130-1

PATIENT

DRUGS (2)
  1. TENOFOVIR [Suspect]
     Active Substance: TENOFOVIR
     Indication: Chronic hepatitis B
     Route: 065
     Dates: start: 201803, end: 202403
  2. TENOFOVIR [Suspect]
     Active Substance: TENOFOVIR
     Indication: Hepatic cirrhosis

REACTIONS (4)
  - Glomerulonephritis membranoproliferative [Recovering/Resolving]
  - Chronic kidney disease [Recovering/Resolving]
  - Tremor [Recovering/Resolving]
  - Speech disorder [Recovered/Resolved]

NARRATIVE: CASE EVENT DATE: 20240101
